FAERS Safety Report 25960599 (Version 1)
Quarter: 2025Q4

REPORT INFORMATION
  Report Type: Spontaneous
  Country: MX (occurrence: MX)
  Receive Date: 20251027
  Receipt Date: 20251027
  Transmission Date: 20260117
  Serious: Yes (Hospitalization)
  Sender: NOVARTIS
  Company Number: MX-002147023-NVSC2025MX162092

PATIENT
  Sex: Female
  Weight: 50 kg

DRUGS (5)
  1. VOTRIENT [Suspect]
     Active Substance: PAZOPANIB HYDROCHLORIDE
     Indication: Brain neoplasm
     Dosage: UNK
     Route: 048
  2. OLANZAPINE [Concomitant]
     Active Substance: OLANZAPINE
     Indication: Nausea
     Dosage: UNK (1 / 2 OF  10MG) (BEFORE  SLEEPING IN  CAUSE OF  NAUSEA)
     Route: 048
  3. LOPERAMIDE [Concomitant]
     Active Substance: LOPERAMIDE
     Indication: Diarrhoea
     Dosage: 2 OF 2MG (IN CASE OF  DIARRHEA) (PILL)
     Route: 048
  4. ALUMINUM [Concomitant]
     Active Substance: ALUMINUM
     Indication: Prophylaxis
     Dosage: 240 ML (ML BEFORE SLEEPING)
     Route: 048
  5. MAGNESIUM [Concomitant]
     Active Substance: MAGNESIUM
     Indication: Prophylaxis
     Dosage: 240 ML (ML BEFORE SLEEPING)
     Route: 048

REACTIONS (9)
  - Feeling abnormal [Not Recovered/Not Resolved]
  - Brain neoplasm [Unknown]
  - Malignant neoplasm progression [Unknown]
  - Aphthous ulcer [Unknown]
  - Feeding disorder [Unknown]
  - Dehydration [Unknown]
  - Anaemia [Unknown]
  - Walking disability [Unknown]
  - Underweight [Unknown]

NARRATIVE: CASE EVENT DATE: 20250501
